FAERS Safety Report 8072682-7 (Version None)
Quarter: 2011Q4

REPORT INFORMATION
  Report Type: 
  Country: None (occurrence: None)
  Receive Date: 20111221
  Receipt Date: 20111010
  Transmission Date: 20120403
  Serious: Yes (Other)
  Sender: FDA-Public Use
  Company Number: PHEH2011US03665

PATIENT
  Age: 9 Year
  Sex: Male
  Weight: 24 kg

DRUGS (1)
  1. EXJADE [Suspect]
     Indication: SICKLE CELL ANAEMIA
     Dosage: 1000 MG, DAILY, ORAL
     Route: 048
     Dates: start: 20080801

REACTIONS (3)
  - SWELLING FACE [None]
  - RASH [None]
  - HYPERSENSITIVITY [None]
